FAERS Safety Report 6079856-5 (Version None)
Quarter: 2009Q1

REPORT INFORMATION
  Report Type: 
  Country: None (occurrence: None)
  Receive Date: 20090212
  Receipt Date: 20090202
  Transmission Date: 20090719
  Serious: Yes (Other)
  Sender: FDA-Public Use
  Company Number: GXKR2009JP01568

PATIENT
  Age: 66 Year
  Sex: Male

DRUGS (2)
  1. CARBOPLATIN [Suspect]
     Indication: LUNG NEOPLASM MALIGNANT
     Dosage: 400 MG, DAILY, INFUSION
     Dates: start: 20081127, end: 20081219
  2. PACLITAXEL [Suspect]
     Indication: LUNG NEOPLASM MALIGNANT
     Dosage: 300 MG, DAILY, INFUSION
     Dates: start: 20081127, end: 20081219

REACTIONS (2)
  - MELAENA [None]
  - UPPER GASTROINTESTINAL HAEMORRHAGE [None]
